FAERS Safety Report 5083434-4 (Version None)
Quarter: 2006Q3

REPORT INFORMATION
  Report Type: 
  Country: None (occurrence: None)
  Receive Date: 20060818
  Receipt Date: 20051216
  Transmission Date: 20061208
  Serious: No
  Sender: FDA-Public Use
  Company Number: PHRM2005FR03298

PATIENT
  Age: 65 Year
  Sex: Male
  Weight: 60 kg

DRUGS (1)
  1. ZOMETA [Suspect]
     Indication: METASTASES TO BONE
     Dosage: 4 MG, QMO
     Route: 042
     Dates: start: 20040410, end: 20051030

REACTIONS (1)
  - PAIN IN JAW [None]
